FAERS Safety Report 19029914 (Version 8)
Quarter: 2022Q4

REPORT INFORMATION
  Report Type: Spontaneous
  Country: CA (occurrence: CA)
  Receive Date: 20210319
  Receipt Date: 20221102
  Transmission Date: 20230113
  Serious: Yes (Death, Other)
  Sender: FDA-Public Use
  Company Number: CA-ABBVIE-21K-028-3821673-00

PATIENT

DRUGS (75)
  1. ADALIMUMAB [Suspect]
     Active Substance: ADALIMUMAB
     Indication: Foetal exposure during pregnancy
     Route: 064
  2. ADALIMUMAB [Suspect]
     Active Substance: ADALIMUMAB
     Indication: Maternal exposure timing unspecified
  3. ADALIMUMAB [Suspect]
     Active Substance: ADALIMUMAB
     Indication: Rheumatoid arthritis
  4. CETIRIZINE HYDROCHLORIDE [Suspect]
     Active Substance: CETIRIZINE HYDROCHLORIDE
     Indication: Rheumatoid arthritis
     Route: 064
  5. CETIRIZINE HYDROCHLORIDE [Suspect]
     Active Substance: CETIRIZINE HYDROCHLORIDE
     Indication: Rheumatoid arthritis
     Route: 064
  6. DIPHENHYDRAMINE HYDROCHLORIDE [Suspect]
     Active Substance: DIPHENHYDRAMINE HYDROCHLORIDE
     Indication: Foetal exposure during pregnancy
     Route: 064
  7. CETIRIZINE HYDROCHLORIDE\PSEUDOEPHEDRINE HYDROCHLORIDE [Suspect]
     Active Substance: CETIRIZINE HYDROCHLORIDE\PSEUDOEPHEDRINE HYDROCHLORIDE
     Indication: Maternal exposure timing unspecified
     Route: 064
  8. REMICADE [Suspect]
     Active Substance: INFLIXIMAB
     Indication: Rheumatoid arthritis
     Route: 064
  9. TOPICORT [Suspect]
     Active Substance: DESOXIMETASONE
     Indication: Foetal exposure during pregnancy
     Route: 064
  10. PREDNISONE [Suspect]
     Active Substance: PREDNISONE
     Indication: Maternal exposure timing unspecified
     Route: 064
  11. ARAVA [Suspect]
     Active Substance: LEFLUNOMIDE
     Indication: Foetal exposure during pregnancy
     Route: 064
  12. DESOXIMETASONE [Suspect]
     Active Substance: DESOXIMETASONE
     Indication: Foetal exposure during pregnancy
     Route: 064
  13. DICLOFENAC SODIUM [Suspect]
     Active Substance: DICLOFENAC SODIUM
     Indication: Foetal exposure during pregnancy
     Route: 064
  14. FOLIC ACID [Suspect]
     Active Substance: FOLIC ACID
     Indication: Rheumatoid arthritis
     Route: 064
  15. METHYLPREDNISOLONE SODIUM SUCCINATE [Suspect]
     Active Substance: METHYLPREDNISOLONE SODIUM SUCCINATE
     Indication: Foetal exposure during pregnancy
     Route: 064
  16. ADALIMUMAB [Suspect]
     Active Substance: ADALIMUMAB
     Indication: Maternal exposure timing unspecified
     Route: 064
  17. HYDROXYCHLOROQUINE SULFATE [Suspect]
     Active Substance: HYDROXYCHLOROQUINE SULFATE
     Indication: Foetal exposure during pregnancy
     Route: 064
  18. METHOTREXATE [Suspect]
     Active Substance: METHOTREXATE
     Indication: Rheumatoid arthritis
     Route: 064
  19. ORENCIA [Suspect]
     Active Substance: ABATACEPT
     Indication: Foetal exposure during pregnancy
     Route: 064
  20. PHTHALYLSULFATHIAZOLE [Suspect]
     Active Substance: PHTHALYLSULFATHIAZOLE
     Indication: Foetal exposure during pregnancy
     Route: 064
  21. SULFASALAZINE [Suspect]
     Active Substance: SULFASALAZINE
     Indication: Foetal exposure during pregnancy
     Route: 064
  22. SULFASALAZINE [Suspect]
     Active Substance: SULFASALAZINE
     Indication: Foetal exposure during pregnancy
     Route: 064
  23. ENBREL [Suspect]
     Active Substance: ETANERCEPT
     Indication: Rheumatoid arthritis
     Route: 064
  24. KEVZARA [Suspect]
     Active Substance: SARILUMAB
     Indication: Rheumatoid arthritis
     Route: 064
  25. ALENDRONATE SODIUM [Suspect]
     Active Substance: ALENDRONATE SODIUM
     Indication: Rheumatoid arthritis
     Route: 064
  26. HYDROCORTISONE ACETATE [Suspect]
     Active Substance: HYDROCORTISONE ACETATE
     Indication: Maternal exposure timing unspecified
     Route: 064
  27. CORTISONE ACETATE [Suspect]
     Active Substance: CORTISONE ACETATE
     Indication: Rheumatoid arthritis
     Route: 064
  28. CORTISONE ACETATE [Suspect]
     Active Substance: CORTISONE ACETATE
     Indication: Rheumatoid arthritis
     Route: 064
  29. GOLIMUMAB [Suspect]
     Active Substance: GOLIMUMAB
     Indication: Foetal exposure during pregnancy
     Route: 064
  30. ALENDRONATE SODIUM [Suspect]
     Active Substance: ALENDRONATE SODIUM
     Indication: Rheumatoid arthritis
     Route: 064
  31. FOSAMAX [Suspect]
     Active Substance: ALENDRONATE SODIUM
     Indication: Rheumatoid arthritis
     Route: 064
  32. LEFLUNOMIDE [Suspect]
     Active Substance: LEFLUNOMIDE
     Indication: Foetal exposure during pregnancy
     Route: 064
  33. DICLOFENAC [Suspect]
     Active Substance: DICLOFENAC
     Indication: Foetal exposure during pregnancy
     Route: 064
  34. RITUXIMAB [Suspect]
     Active Substance: RITUXIMAB
     Indication: Foetal exposure during pregnancy
     Route: 064
  35. XELJANZ [Suspect]
     Active Substance: TOFACITINIB CITRATE
     Indication: Foetal exposure during pregnancy
     Route: 064
  36. TOCILIZUMAB [Suspect]
     Active Substance: TOCILIZUMAB
     Indication: Foetal exposure during pregnancy
     Route: 064
  37. ERELZI [Suspect]
     Active Substance: ETANERCEPT-SZZS
     Indication: Foetal exposure during pregnancy
     Route: 064
  38. HYDROXYCHLOROQUINE [Suspect]
     Active Substance: HYDROXYCHLOROQUINE
     Indication: Foetal exposure during pregnancy
     Route: 064
  39. CIMZIA [Suspect]
     Active Substance: CERTOLIZUMAB PEGOL
     Indication: Rheumatoid arthritis
     Route: 064
  40. SIMPONI [Suspect]
     Active Substance: GOLIMUMAB
     Indication: Foetal exposure during pregnancy
     Route: 064
  41. STELARA [Suspect]
     Active Substance: USTEKINUMAB
     Indication: Foetal exposure during pregnancy
     Route: 064
  42. PSEUDOEPHEDRINE HYDROCHLORIDE [Suspect]
     Active Substance: PSEUDOEPHEDRINE HYDROCHLORIDE
     Indication: Rheumatoid arthritis
     Route: 064
  43. PREDNISONE [Suspect]
     Active Substance: PREDNISONE
     Indication: Foetal exposure during pregnancy
     Route: 064
  44. ACTEMRA [Suspect]
     Active Substance: TOCILIZUMAB
     Indication: Foetal exposure during pregnancy
     Route: 064
  45. SOLU-MEDROL [Suspect]
     Active Substance: METHYLPREDNISOLONE SODIUM SUCCINATE
     Indication: Foetal exposure during pregnancy
     Route: 064
  46. CETIRIZINE HYDROCHLORIDE\PSEUDOEPHEDRINE HYDROCHLORIDE [Suspect]
     Active Substance: CETIRIZINE HYDROCHLORIDE\PSEUDOEPHEDRINE HYDROCHLORIDE
     Indication: Maternal exposure timing unspecified
     Dosage: EXTENDED RELEASE
     Route: 050
  47. ACETAMINOPHEN [Suspect]
     Active Substance: ACETAMINOPHEN
     Indication: Foetal exposure during pregnancy
     Route: 064
  48. ACETAMINOPHEN [Suspect]
     Active Substance: ACETAMINOPHEN
     Indication: Foetal exposure during pregnancy
  49. OTEZLA [Suspect]
     Active Substance: APREMILAST
     Indication: Foetal exposure during pregnancy
     Route: 064
  50. INFLIXIMAB [Suspect]
     Active Substance: INFLIXIMAB
     Indication: Foetal exposure during pregnancy
  51. INFLIXIMAB [Suspect]
     Active Substance: INFLIXIMAB
     Indication: Foetal exposure during pregnancy
     Route: 064
  52. CETIRIZINE HYDROCHLORIDE AND PSEUDOEPHEDRINE HYDROCHLORIDE [Suspect]
     Active Substance: CETIRIZINE HYDROCHLORIDE\PSEUDOEPHEDRINE HYDROCHLORIDE
     Indication: Rheumatoid arthritis
     Route: 064
  53. HYDROCORTISONE [Suspect]
     Active Substance: HYDROCORTISONE
     Indication: Maternal exposure timing unspecified
     Route: 065
  54. PREDNISONE [Suspect]
     Active Substance: PREDNISONE
     Indication: Foetal exposure during pregnancy
     Route: 064
  55. CODEINE [Concomitant]
     Active Substance: CODEINE
     Indication: Foetal exposure during pregnancy
     Route: 064
  56. CODEINE [Concomitant]
     Active Substance: CODEINE
     Indication: Foetal exposure during pregnancy
     Route: 064
  57. CODEINE [Concomitant]
     Active Substance: CODEINE
     Indication: Foetal exposure during pregnancy
     Route: 064
  58. LISINOPRIL [Concomitant]
     Active Substance: LISINOPRIL
     Indication: Foetal exposure during pregnancy
     Route: 064
  59. SULFASALAZINE [Concomitant]
     Active Substance: SULFASALAZINE
     Indication: Foetal exposure during pregnancy
     Route: 064
  60. SULFASALAZINE [Concomitant]
     Active Substance: SULFASALAZINE
     Indication: Foetal exposure during pregnancy
     Route: 064
  61. VITAMIN D3 [Concomitant]
     Active Substance: CHOLECALCIFEROL
     Indication: Foetal exposure during pregnancy
     Route: 064
  62. VITAMIN D3 [Concomitant]
     Active Substance: CHOLECALCIFEROL
     Indication: Foetal exposure during pregnancy
     Route: 064
  63. IBUPROFEN [Concomitant]
     Active Substance: IBUPROFEN
     Indication: Foetal exposure during pregnancy
     Route: 064
  64. CAFFEINE CITRATE [Concomitant]
     Active Substance: CAFFEINE CITRATE
     Indication: Foetal exposure during pregnancy
     Route: 064
  65. CAFFEINE CITRATE [Concomitant]
     Active Substance: CAFFEINE CITRATE
     Indication: Foetal exposure during pregnancy
     Route: 064
  66. CAFFEINE CITRATE [Concomitant]
     Active Substance: CAFFEINE CITRATE
     Indication: Foetal exposure during pregnancy
     Route: 064
  67. TOFACITINIB CITRATE [Concomitant]
     Active Substance: TOFACITINIB CITRATE
     Indication: Foetal exposure during pregnancy
     Route: 064
  68. TOFACITINIB CITRATE [Concomitant]
     Active Substance: TOFACITINIB CITRATE
     Indication: Foetal exposure during pregnancy
     Route: 064
  69. TOFACITINIB CITRATE [Concomitant]
     Active Substance: TOFACITINIB CITRATE
     Indication: Foetal exposure during pregnancy
     Route: 064
  70. BENADRYL [Suspect]
     Active Substance: DIPHENHYDRAMINE HYDROCHLORIDE
     Indication: Foetal exposure during pregnancy
     Route: 064
  71. DIPHENHYDRAMINE [Suspect]
     Active Substance: DIPHENHYDRAMINE
     Indication: Foetal exposure during pregnancy
     Route: 064
  72. DICLOFENAC POTASSIUM [Concomitant]
     Active Substance: DICLOFENAC POTASSIUM
     Indication: Foetal exposure during pregnancy
  73. PLAQUENIL [Suspect]
     Active Substance: HYDROXYCHLOROQUINE SULFATE
     Indication: Foetal exposure during pregnancy
     Route: 064
  74. HYDROCORTISONE ACETATE\ISOCONAZOLE NITRATE [Suspect]
     Active Substance: HYDROCORTISONE ACETATE\ISOCONAZOLE NITRATE
     Indication: Foetal exposure during pregnancy
     Route: 064
  75. ALENDRONIC ACID [Suspect]
     Active Substance: ALENDRONIC ACID
     Indication: Foetal exposure during pregnancy
     Route: 013

REACTIONS (2)
  - Death neonatal [Fatal]
  - Foetal exposure during pregnancy [Fatal]
